FAERS Safety Report 8220689-9 (Version None)
Quarter: 2012Q1

REPORT INFORMATION
  Report Type: 
  Country: None (occurrence: None)
  Receive Date: 20120320
  Receipt Date: 20120312
  Transmission Date: 20120608
  Serious: Yes (Hospitalization)
  Sender: FDA-Public Use
  Company Number: US-VERTEX PHARMACEUTICALS INC.-AE-2012-003517

PATIENT
  Sex: Female
  Weight: 60.836 kg

DRUGS (3)
  1. INCIVEK [Suspect]
     Indication: HEPATITIS C
     Route: 048
     Dates: start: 20111109, end: 20120126
  2. RIBAVIRIN [Concomitant]
     Indication: HEPATITIS C
     Route: 048
     Dates: start: 20111109, end: 20120126
  3. PEGASYS [Concomitant]
     Indication: HEPATITIS C
     Route: 058
     Dates: start: 20111109, end: 20120126

REACTIONS (8)
  - RESTLESSNESS [None]
  - EPISTAXIS [None]
  - ANAEMIA [None]
  - FEELING COLD [None]
  - FORMICATION [None]
  - LUNG INFECTION [None]
  - DEHYDRATION [None]
  - FLUSHING [None]
